FAERS Safety Report 5535147-X (Version None)
Quarter: 2007Q4

REPORT INFORMATION
  Report Type: 
  Country: None (occurrence: None)
  Receive Date: 20071205
  Receipt Date: 20071130
  Transmission Date: 20080405
  Serious: Yes (Other)
  Sender: FDA-Public Use
  Company Number: US-GILEAD-2007-0014495

PATIENT
  Sex: Female
  Weight: 64.922 kg

DRUGS (10)
  1. LETAIRIS [Suspect]
     Indication: PULMONARY HYPERTENSION
     Route: 048
     Dates: start: 20070803
  2. CIALIS [Concomitant]
     Indication: PULMONARY HYPERTENSION
     Route: 048
  3. ATENOLOL [Concomitant]
     Indication: ESSENTIAL HYPERTENSION
     Route: 048
  4. LEVOTHYROXINE SODIUM [Concomitant]
     Indication: HYPOTHYROIDISM
     Route: 048
  5. SPIRONOLACTONE [Concomitant]
     Indication: ASTHMA
     Route: 048
  6. POTASSIUM CHLORIDE CR [Concomitant]
     Indication: HYPOKALAEMIA
     Route: 048
  7. ZANTAC [Concomitant]
     Indication: GASTROOESOPHAGEAL REFLUX DISEASE
     Route: 048
  8. AMITRIPTLINE HCL [Concomitant]
     Indication: DEPRESSION
     Route: 048
  9. KLONOPIN [Concomitant]
     Indication: DEPRESSION
     Route: 048
  10. NEURONTIN [Concomitant]
     Indication: NEUROPATHY
     Route: 048

REACTIONS (3)
  - DEPRESSION [None]
  - DIARRHOEA [None]
  - FATIGUE [None]
